APPROVED DRUG PRODUCT: ZONISAMIDE
Active Ingredient: ZONISAMIDE
Strength: 25MG
Dosage Form/Route: CAPSULE;ORAL
Application: A219507 | Product #001
Applicant: MACLEODS PHARMACEUTICALS LTD
Approved: May 12, 2025 | RLD: No | RS: No | Type: DISCN